FAERS Safety Report 8602804 (Version 3)
Quarter: 2013Q1

REPORT INFORMATION
  Report Type: Spontaneous
  Country: JP (occurrence: JP)
  Receive Date: 20120607
  Receipt Date: 20130128
  Transmission Date: 20140127
  Serious: Yes (Death)
  Sender: FDA-Public Use
  Company Number: JP-ROCHE-1075527

PATIENT
  Age: 83 Year
  Sex: Male
  Weight: 68 kg

DRUGS (7)
  1. ACTIVACIN [Suspect]
     Indication: EMBOLIC STROKE
     Dosage: DOSE 23.4 MIU/DAY
     Route: 040
     Dates: start: 20120417, end: 20120417
  2. HEPARIN SODIUM [Suspect]
     Indication: EMBOLIC STROKE
     Route: 041
     Dates: start: 20120417, end: 20120420
  3. RADICUT [Suspect]
     Indication: EMBOLIC STROKE
     Route: 065
     Dates: start: 20120417, end: 20120420
  4. TAKEPRON [Concomitant]
     Route: 048
     Dates: start: 20120418, end: 20120419
  5. PROMAC [Concomitant]
     Route: 048
     Dates: start: 20120418, end: 20120420
  6. MIYA-BM [Concomitant]
     Route: 048
     Dates: start: 20120418, end: 20120420
  7. CINAL [Concomitant]
     Route: 048
     Dates: start: 20120418, end: 20120420

REACTIONS (1)
  - Haemorrhagic cerebral infarction [Fatal]
